FAERS Safety Report 5652281-4 (Version None)
Quarter: 2008Q1

REPORT INFORMATION
  Report Type: 
  Country: None (occurrence: None)
  Receive Date: 20080305
  Receipt Date: 20080212
  Transmission Date: 20080703
  Serious: No
  Sender: FDA-Public Use
  Company Number: US-BOEHRINGER INGELHEIM GMBH, GERMANY-2007-BP-26216BP

PATIENT
  Age: 80 Year
  Sex: Female

DRUGS (3)
  1. SPIRIVA [Suspect]
     Indication: COUGH
     Route: 055
  2. ATENOLOL [Concomitant]
     Indication: HYPERTENSION
     Route: 048
  3. FLOVENT [Concomitant]
     Route: 055

REACTIONS (1)
  - COUGH [None]
